FAERS Safety Report 8828679 (Version 1)
Quarter: 2012Q4

REPORT INFORMATION
  Report Type: 
  Country: GB (occurrence: GB)
  Receive Date: 20121005
  Receipt Date: 20121005
  Transmission Date: 20130627
  Serious: Yes (Hospitalization)
  Sender: FDA-Public Use
  Company Number: GB-ASTELLAS-2012EU007247

PATIENT
  Sex: Male

DRUGS (1)
  1. VESICARE [Suspect]
     Dosage: 5 mg, Unknown/D
     Route: 065

REACTIONS (5)
  - Injury [Unknown]
  - Ankle fracture [Unknown]
  - Urinary retention [Unknown]
  - Urine flow decreased [Unknown]
  - Micturition urgency [Unknown]
